FAERS Safety Report 18496376 (Version 1)
Quarter: 2020Q4

REPORT INFORMATION
  Report Type: Spontaneous
  Country: US (occurrence: US)
  Receive Date: 20201112
  Receipt Date: 20201112
  Transmission Date: 20210114
  Serious: Yes (Other)
  Sender: FDA-Public Use
  Company Number: US-009507513-2011USA004230

PATIENT
  Age: 64 Year
  Sex: Female
  Weight: 75.1 kg

DRUGS (41)
  1. ONDANSETRON [Concomitant]
     Active Substance: ONDANSETRON
     Indication: VOMITING
     Dosage: 128MG MILLIGRAM(S)
  2. ONDANSETRON [Concomitant]
     Active Substance: ONDANSETRON
     Indication: NAUSEA
     Dosage: 8 MG, EVERY 12 HOURS
     Route: 042
     Dates: start: 20140627, end: 20140704
  3. LASIX [Concomitant]
     Active Substance: FUROSEMIDE
     Indication: OEDEMA
  4. LORAZEPAM. [Concomitant]
     Active Substance: LORAZEPAM
     Indication: ANXIETY
     Dosage: 0.5-1 MG, PRN
     Route: 042
     Dates: start: 20140714, end: 20140714
  5. LORAZEPAM. [Concomitant]
     Active Substance: LORAZEPAM
     Dosage: 0.5-1 MG, PRN
     Route: 042
     Dates: start: 20140718, end: 20140718
  6. CYTARABINE. [Suspect]
     Active Substance: CYTARABINE
     Indication: ACUTE MYELOID LEUKAEMIA
     Dosage: 190 MG, CONTINUOS INFUSION ON DAYS 1-7
     Route: 042
     Dates: start: 20140627, end: 20140704
  7. MEROPENEM. [Suspect]
     Active Substance: MEROPENEM
     Indication: DUODENITIS
     Dosage: 1 GRAM, Q8H
     Route: 042
     Dates: start: 20140712, end: 20140729
  8. VANCOMYCIN [Concomitant]
     Active Substance: VANCOMYCIN
     Indication: PROPHYLAXIS
     Dosage: 1250 MG, EVERY 12 HOURS
     Route: 042
     Dates: start: 20140702, end: 20140703
  9. VANCOMYCIN [Concomitant]
     Active Substance: VANCOMYCIN
     Dosage: 1000 MG, Q12H
     Route: 042
     Dates: start: 20140710, end: 20140727
  10. LASIX [Concomitant]
     Active Substance: FUROSEMIDE
     Indication: DIURETIC THERAPY
     Dosage: 20 MG, Q24HR FOR 0.5 KG ABOVE GOAL
     Route: 042
     Dates: start: 20140627, end: 20140712
  11. OXYCODONE [Concomitant]
     Active Substance: OXYCODONE
     Indication: PAIN
     Route: 048
     Dates: start: 20140709
  12. ACETAMINOPHEN. [Concomitant]
     Active Substance: ACETAMINOPHEN
     Indication: PYREXIA
     Route: 048
     Dates: start: 20140702, end: 20140702
  13. ALLOPURINOL. [Concomitant]
     Active Substance: ALLOPURINOL
     Indication: PROPHYLAXIS
     Route: 048
     Dates: start: 20140628, end: 20140704
  14. LORAZEPAM. [Concomitant]
     Active Substance: LORAZEPAM
     Indication: SEDATION
     Dosage: 0.5-1 MG, PRN
     Route: 042
     Dates: start: 20140719, end: 20140723
  15. MIRALAX [Concomitant]
     Active Substance: POLYETHYLENE GLYCOL 3350
     Indication: CONSTIPATION
     Route: 048
     Dates: start: 20140628, end: 20140702
  16. MEROPENEM. [Suspect]
     Active Substance: MEROPENEM
     Indication: PROPHYLAXIS
     Dosage: UNK
     Route: 042
  17. VALTREX [Concomitant]
     Active Substance: VALACYCLOVIR HYDROCHLORIDE
     Indication: PROPHYLAXIS
     Dosage: 500 MG, EVERY 12 HOURS
     Route: 048
     Dates: start: 20140624, end: 20140828
  18. PIPERACILLIN. [Concomitant]
     Active Substance: PIPERACILLIN SODIUM
     Indication: PROPHYLAXIS
     Dates: start: 20140724
  19. LOPERAMIDE [Concomitant]
     Active Substance: LOPERAMIDE
     Indication: DIARRHOEA
     Dosage: 2 MG, EVERY 6 HOURS AS NEEDED
     Route: 048
     Dates: start: 20140707, end: 20140712
  20. SEVELAMER [Concomitant]
     Active Substance: SEVELAMER
     Indication: PROPHYLAXIS
     Route: 048
     Dates: start: 20140624, end: 20140705
  21. PF-04449913 [Suspect]
     Active Substance: GLASDEGIB
     Indication: ACUTE MYELOID LEUKAEMIA
     Dosage: 100 MILLIGRAM, QD
     Route: 048
     Dates: start: 20140624
  22. MOXIFLOXACIN. [Concomitant]
     Active Substance: MOXIFLOXACIN
     Indication: PROPHYLAXIS
     Route: 048
     Dates: start: 20140624, end: 20140702
  23. SENNA [Concomitant]
     Active Substance: SENNA LEAF\SENNOSIDES\SENNOSIDES A AND B
     Indication: CONSTIPATION
     Dosage: 187 MG, QHR
     Dates: start: 20140630, end: 20140704
  24. OXYCODONE [Concomitant]
     Active Substance: OXYCODONE
     Indication: BACK PAIN
     Dosage: 5 MG, Q4HR PRN TAKEN INTERMITTENTLY
     Route: 048
     Dates: start: 20140623
  25. PIPERACILLIN. [Concomitant]
     Active Substance: PIPERACILLIN SODIUM
     Dosage: 3.375 G, EVERY 4 HRS
     Route: 042
     Dates: start: 20140702
  26. MICAFUNGIN. [Concomitant]
     Active Substance: MICAFUNGIN SODIUM
     Indication: PROPHYLAXIS
     Route: 042
     Dates: start: 20140701, end: 20140727
  27. ZOSYN [Concomitant]
     Active Substance: PIPERACILLIN SODIUM\TAZOBACTAM SODIUM
     Dosage: 3.375 G, Q4H
     Route: 042
     Dates: start: 20140710, end: 20140712
  28. DAUNORUBICIN [Suspect]
     Active Substance: DAUNORUBICIN
     Indication: ACUTE MYELOID LEUKAEMIA
     Dosage: 111 MG, ONCE DAILY ON DAYS 1-3
     Route: 040
     Dates: start: 20140627, end: 20140629
  29. PANTOPRAZOLE [Concomitant]
     Active Substance: PANTOPRAZOLE
     Indication: PROPHYLAXIS
     Route: 048
     Dates: start: 20140624, end: 20140712
  30. LORAZEPAM. [Concomitant]
     Active Substance: LORAZEPAM
     Dosage: 0.5-1 MG, PRN
     Route: 042
     Dates: start: 20140729
  31. MORPHINE [Suspect]
     Active Substance: MORPHINE
     Indication: CHILLS
     Dosage: UNK
     Dates: start: 20140702, end: 20140702
  32. POTASSIUM CHLORIDE. [Concomitant]
     Active Substance: POTASSIUM CHLORIDE
     Indication: BLOOD POTASSIUM DECREASED
     Dosage: 40 MBQ, Q4HR PRN
     Route: 042
     Dates: start: 20140705, end: 20140709
  33. LORAZEPAM. [Concomitant]
     Active Substance: LORAZEPAM
     Indication: INSOMNIA
     Dosage: 0.5-1 MG, PRN
     Route: 042
     Dates: start: 20140702, end: 20140702
  34. LORAZEPAM. [Concomitant]
     Active Substance: LORAZEPAM
     Dosage: 0.5-1 MG, PRN
     Route: 042
     Dates: start: 20140623
  35. LACTULOSE. [Concomitant]
     Active Substance: LACTULOSE
     Indication: CONSTIPATION
     Dosage: 30 MG, Q2HR X 2 DOSES
     Route: 048
     Dates: start: 20140702, end: 20140702
  36. CHOLECALCIFEROL [Concomitant]
     Active Substance: CHOLECALCIFEROL
     Indication: HYPOVITAMINOSIS
     Route: 048
     Dates: start: 20140628
  37. PRINIVIL [Suspect]
     Active Substance: LISINOPRIL
     Indication: HYPERTENSION
     Dosage: UNK
     Route: 048
  38. CAPTOPRIL. [Concomitant]
     Active Substance: CAPTOPRIL
     Indication: HYPERTENSION
     Route: 048
     Dates: start: 20140627, end: 20140712
  39. LASIX [Concomitant]
     Active Substance: FUROSEMIDE
     Indication: BLOOD PRESSURE INCREASED
     Dates: start: 20140710, end: 20140710
  40. LASIX [Concomitant]
     Active Substance: FUROSEMIDE
     Indication: POLYURIA
  41. DOCUSATE SODIUM. [Concomitant]
     Active Substance: DOCUSATE SODIUM
     Indication: CONSTIPATION
     Route: 048
     Dates: start: 20130630, end: 20140703

REACTIONS (25)
  - Loss of consciousness [Unknown]
  - White blood cell count abnormal [Unknown]
  - Hyperlipidaemia [Unknown]
  - Upper gastrointestinal haemorrhage [Recovered/Resolved]
  - Haemoglobin abnormal [Unknown]
  - Melaena [Unknown]
  - Pancreatitis acute [Unknown]
  - Myocardial infarction [Unknown]
  - Myelodysplastic syndrome [Unknown]
  - Gastrointestinal erosion [Unknown]
  - Neutropenia [Unknown]
  - Presyncope [Recovered/Resolved]
  - Gastrointestinal haemorrhage [Recovered/Resolved]
  - Bone marrow failure [Unknown]
  - Postmenopausal haemorrhage [Unknown]
  - Myoclonus [Unknown]
  - Acute myeloid leukaemia [Unknown]
  - Abdominal pain upper [Unknown]
  - Pancytopenia [Unknown]
  - Syncope [Unknown]
  - Duodenitis [Unknown]
  - Dyskinesia [Recovered/Resolved]
  - Hepatic cyst [Unknown]
  - Fatigue [Unknown]
  - Malaise [Unknown]

NARRATIVE: CASE EVENT DATE: 201201
